FAERS Safety Report 8489368-7 (Version None)
Quarter: 2012Q3

REPORT INFORMATION
  Report Type: 
  Country: None (occurrence: None)
  Receive Date: 20120705
  Receipt Date: 20120626
  Transmission Date: 20120928
  Serious: No
  Sender: FDA-Public Use
  Company Number: US-ASTRAZENECA-2010SE60778

PATIENT
  Age: 44 Year
  Sex: Female

DRUGS (1)
  1. SEROQUEL XR [Suspect]
     Route: 048

REACTIONS (13)
  - SCHIZOPHRENIA [None]
  - PAIN IN EXTREMITY [None]
  - PANIC ATTACK [None]
  - DRUG DOSE OMISSION [None]
  - DEPRESSION [None]
  - PSYCHIATRIC SYMPTOM [None]
  - POST-TRAUMATIC STRESS DISORDER [None]
  - ANXIETY [None]
  - FEELINGS OF WORTHLESSNESS [None]
  - BACK PAIN [None]
  - ARTHRALGIA [None]
  - FEELING ABNORMAL [None]
  - ROAD TRAFFIC ACCIDENT [None]
